FAERS Safety Report 4318489-5 (Version None)
Quarter: 2004Q1

REPORT INFORMATION
  Report Type: 
  Country: None (occurrence: None)
  Receive Date: 20040316
  Receipt Date: 20040316
  Transmission Date: 20041129
  Serious: Yes (Other)
  Sender: FDA-Public Use
  Company Number: None

PATIENT
  Age: 67 Year
  Sex: Male

DRUGS (3)
  1. TRAMADOL HCL [Suspect]
     Indication: PAIN
     Dosage: 50 - 100MG TID ORAL
     Route: 048
     Dates: start: 20041104, end: 20041215
  2. SIMVASTATIN [Concomitant]
  3. DILTIAZEM [Concomitant]

REACTIONS (2)
  - PALPITATIONS [None]
  - PHARMACEUTICAL PRODUCT COMPLAINT [None]
